FAERS Safety Report 5066417-X (Version None)
Quarter: 2006Q3

REPORT INFORMATION
  Report Type: 
  Country: None (occurrence: None)
  Receive Date: 20060801
  Receipt Date: 20060413
  Transmission Date: 20061208
  Serious: Yes (Other)
  Sender: FDA-Public Use
  Company Number: PHNU2006DE01689

PATIENT
  Sex: Female
  Weight: 90 kg

DRUGS (4)
  1. CIBADREX [Suspect]
     Indication: HYPERTENSION
     Dosage: 1 DF, QD
     Dates: start: 20040501
  2. CARVEDILOL [Concomitant]
     Dates: start: 20020101
  3. ARTELAC [Concomitant]
  4. DIDRONEL-KIT ^HOECHST^ [Concomitant]

REACTIONS (1)
  - GINGIVAL HYPERPLASIA [None]
